FAERS Safety Report 20935613 (Version 2)
Quarter: 2022Q2

REPORT INFORMATION
  Report Type: Spontaneous
  Country: US (occurrence: US)
  Receive Date: 20220609
  Receipt Date: 20220625
  Transmission Date: 20220721
  Serious: Yes (Hospitalization)
  Sender: FDA-Public Use
  Company Number: US-TEVA-2022-US-2043569

PATIENT
  Age: 56 Year
  Sex: Male

DRUGS (1)
  1. PHENYTOIN [Suspect]
     Active Substance: PHENYTOIN
     Indication: Suicide attempt
     Route: 065

REACTIONS (7)
  - Ataxia [Recovering/Resolving]
  - Agitation [Recovering/Resolving]
  - Depression [Recovering/Resolving]
  - Constipation [Recovering/Resolving]
  - Hypothyroidism [Recovering/Resolving]
  - Autoimmune thyroiditis [Recovering/Resolving]
  - Intentional overdose [Unknown]
